FAERS Safety Report 8860580 (Version 2)
Quarter: 2012Q4

REPORT INFORMATION
  Report Type: 
  Country: DE (occurrence: DE)
  Receive Date: 20121025
  Receipt Date: 20121105
  Transmission Date: 20130627
  Serious: Yes (Hospitalization)
  Sender: FDA-Public Use
  Company Number: DE-TEVA-365403GER

PATIENT
  Age: 59 Year
  Sex: Female

DRUGS (9)
  1. CICLOSPORIN [Suspect]
     Indication: IMMUNOSUPPRESSANT DRUG THERAPY
     Route: 065
     Dates: start: 1997
  2. CICLOSPORIN [Suspect]
     Indication: IMMUNOSUPPRESSANT DRUG THERAPY
     Dosage: reduced to 40-50 pg/microL
     Route: 065
     Dates: start: 1997
  3. ETOPOSIDE [Suspect]
     Indication: HISTIOCYTOSIS HAEMATOPHAGIC
     Dosage: 100 mg/m2 for 3 days
     Route: 065
  4. DEXAMETHASONE [Suspect]
     Indication: HISTIOCYTOSIS HAEMATOPHAGIC
     Dosage: 10 mg/m2 with subsequent tapering over 2 weeks
     Route: 065
  5. DEXAMETHASONE [Suspect]
     Indication: B-CELL LYMPHOMA
     Dosage: 40mg
     Route: 065
  6. MYCOPHENOLATE [Suspect]
     Indication: IMMUNOSUPPRESSANT DRUG THERAPY
     Route: 065
     Dates: start: 1997
  7. EVEROLIMUS [Suspect]
     Indication: IMMUNOSUPPRESSANT DRUG THERAPY
     Dosage: 4-8 pg/microL
     Route: 065
     Dates: start: 200809, end: 200905
  8. CYTARABINE [Suspect]
     Indication: B-CELL LYMPHOMA
     Dosage: 2 x 2 g/m2
     Route: 065
  9. RITUXIMAB [Concomitant]
     Indication: POST TRANSPLANT LYMPHOPROLIFERATIVE DISORDER
     Route: 065

REACTIONS (7)
  - Post transplant lymphoproliferative disorder [Not Recovered/Not Resolved]
  - Epstein-Barr virus infection [Recovering/Resolving]
  - Histiocytosis haematophagic [Recovering/Resolving]
  - Renal failure acute [Recovering/Resolving]
  - Urosepsis [Recovering/Resolving]
  - Anaemia [Unknown]
  - Febrile neutropenia [Unknown]
